FAERS Safety Report 18017472 (Version 1)
Quarter: 2020Q3

REPORT INFORMATION
  Report Type: Report from Study
  Country: US (occurrence: US)
  Receive Date: 20200714
  Receipt Date: 20200714
  Transmission Date: 20201103
  Serious: Yes (Other)
  Sender: FDA-Public Use
  Company Number: US-BEH-2020119975

PATIENT
  Age: 40 Year
  Sex: Female

DRUGS (2)
  1. HAEGARDA [Suspect]
     Active Substance: HUMAN C1-ESTERASE INHIBITOR
     Indication: PROPHYLAXIS
  2. HAEGARDA [Suspect]
     Active Substance: HUMAN C1-ESTERASE INHIBITOR
     Indication: HEREDITARY ANGIOEDEMA
     Dosage: 4000 INTERNATIONAL UNIT, EVERY 4 DAYS
     Route: 058
     Dates: start: 20200613

REACTIONS (5)
  - No adverse event [Unknown]
  - Incorrect drug administration rate [Unknown]
  - Pharyngeal swelling [Recovered/Resolved]
  - Incorrect dose administered [Unknown]
  - Infusion site nodule [Recovered/Resolved]

NARRATIVE: CASE EVENT DATE: 2020
